FAERS Safety Report 20878091 (Version 1)
Quarter: 2022Q2

REPORT INFORMATION
  Report Type: Report from Study
  Country: US (occurrence: None)
  Receive Date: 20220526
  Receipt Date: 20220526
  Transmission Date: 20220721
  Serious: Yes (Hospitalization, Other)
  Sender: FDA-Public Use
  Company Number: US-ROCHE-2806806

PATIENT
  Age: 67 Year
  Sex: Female
  Weight: 55.388 kg

DRUGS (12)
  1. ATEZOLIZUMAB [Suspect]
     Active Substance: ATEZOLIZUMAB
     Indication: Endometrial cancer
     Dosage: DATE OF MOST RECENT DOSE OF ATEZOLIZUMAB PRIOR TO ONSET OF SAE: 26/MAR/2021 (1200 MG)
     Route: 041
     Dates: start: 20210305
  2. BEVACIZUMAB [Suspect]
     Active Substance: BEVACIZUMAB
     Indication: Endometrial cancer
     Dosage: DATE OF MOST RECENT DOSE OF BEVACIZUMAB PRIOR TO ONSET OF SAE: 26/MAR/2021 (864 MG)
     Route: 042
     Dates: start: 20210305
  3. RUCAPARIB [Suspect]
     Active Substance: RUCAPARIB
     Indication: Endometrial cancer
     Dosage: DATE OF MOST RECENT DOSE OF RUCAPARIB PRIOR TO ONSET OF SAE: 02/APR/2021 (600 MG)
     Route: 048
     Dates: start: 20210305, end: 20210402
  4. AMLODIPINE [Concomitant]
     Active Substance: AMLODIPINE BESYLATE
     Indication: Hypertension
     Dates: start: 20200601
  5. LIPITOR [Concomitant]
     Active Substance: ATORVASTATIN CALCIUM
     Indication: Blood cholesterol increased
     Dates: start: 20200904
  6. METOPROLOL SUCCINATE [Concomitant]
     Active Substance: METOPROLOL SUCCINATE
     Indication: Hypertension
     Dates: start: 20200714
  7. MAGNESIUM OXIDE [Concomitant]
     Active Substance: MAGNESIUM OXIDE
     Indication: Hypertension
     Dates: start: 20200714
  8. ZOFRAN [Concomitant]
     Active Substance: ONDANSETRON HYDROCHLORIDE
  9. ZOSYN [Concomitant]
     Active Substance: PIPERACILLIN SODIUM\TAZOBACTAM SODIUM
  10. ZARXIO [Concomitant]
     Active Substance: FILGRASTIM-SNDZ
  11. GCSF TYPE GROWTH FACTORS (UNK INGREDIENTS) [Concomitant]
  12. FENTANYL [Concomitant]
     Active Substance: FENTANYL

REACTIONS (3)
  - Small intestinal obstruction [Recovered/Resolved]
  - Colonic fistula [Recovered/Resolved]
  - Abdominal pain [Unknown]

NARRATIVE: CASE EVENT DATE: 20210402
